FAERS Safety Report 8249222-2 (Version None)
Quarter: 2012Q2

REPORT INFORMATION
  Report Type: 
  Country: None (occurrence: None)
  Receive Date: 20120402
  Receipt Date: 20120323
  Transmission Date: 20120825
  Serious: Yes (Hospitalization)
  Sender: FDA-Public Use
  Company Number: FR-UCBSA-054047

PATIENT
  Age: 77 Year
  Sex: Male

DRUGS (11)
  1. KALEORID [Concomitant]
     Dosage: 1000 MG
  2. DEXERYL [Concomitant]
  3. ACETAMINOPHEN [Concomitant]
  4. KEPPRA [Suspect]
  5. KEPPRA [Suspect]
     Indication: EPILEPSY
     Dosage: TOTAL DAILY DOSE : 500 MG
     Route: 048
     Dates: start: 20100301
  6. GALANTAMINE HYDROBROMIDE [Suspect]
     Route: 048
     Dates: start: 20070101, end: 20100101
  7. VITAMIN B1B6 [Concomitant]
  8. FOLIC ACID [Concomitant]
     Dosage: 5 MG
  9. MAGNE B6 [Concomitant]
  10. GLUCOPHAGE [Concomitant]
     Dosage: 1000 MG
  11. VITAMINE B12 [Concomitant]
     Dosage: 250 MG

REACTIONS (7)
  - GENERAL PHYSICAL HEALTH DETERIORATION [None]
  - PSYCHOMOTOR SKILLS IMPAIRED [None]
  - MEMORY IMPAIRMENT [None]
  - DISTURBANCE IN ATTENTION [None]
  - SOMNOLENCE [None]
  - DYSPHONIA [None]
  - DYSPHAGIA [None]
